FAERS Safety Report 15994948 (Version 1)
Quarter: 2019Q1

REPORT INFORMATION
  Report Type: Spontaneous
  Country: DE (occurrence: DE)
  Receive Date: 20190222
  Receipt Date: 20190222
  Transmission Date: 20190418
  Serious: Yes (Congenital Anomaly)
  Sender: FDA-Public Use
  Company Number: DE-TORRENT-00013351

PATIENT
  Age: 1 Day
  Sex: Female
  Weight: 3 kg

DRUGS (3)
  1. CITALOPRAM [Suspect]
     Active Substance: CITALOPRAM HYDROBROMIDE
     Indication: ANXIETY DISORDER
     Dosage: 20 [MG/D ]
     Route: 064
     Dates: start: 20171014, end: 20180723
  2. COLECALCIFEROL [Concomitant]
     Active Substance: CHOLECALCIFEROL
     Indication: VITAMIN D DEFICIENCY
     Dosage: 2000 [I.E./D ]
     Route: 064
     Dates: start: 20171014, end: 20180723
  3. ELEVIT [Concomitant]
     Active Substance: FOLIC ACID\IRON\MINERALS\VITAMINS
     Indication: PROPHYLAXIS OF NEURAL TUBE DEFECT
     Dosage: UNKNOWN
     Route: 064
     Dates: start: 20171014, end: 20180723

REACTIONS (9)
  - Oesophageal atresia [Recovered/Resolved with Sequelae]
  - Polydactyly [Not Recovered/Not Resolved]
  - Atrial septal defect [Not Recovered/Not Resolved]
  - VACTERL syndrome [Not Recovered/Not Resolved]
  - Tracheo-oesophageal fistula [Recovered/Resolved with Sequelae]
  - Vena cava thrombosis [Not Recovered/Not Resolved]
  - Foetal exposure during pregnancy [Unknown]
  - Ventricular septal defect [Not Recovered/Not Resolved]
  - Factor V Leiden mutation [Not Recovered/Not Resolved]

NARRATIVE: CASE EVENT DATE: 20180723
